FAERS Safety Report 7555937-1 (Version None)
Quarter: 2011Q2

REPORT INFORMATION
  Report Type: 
  Country: None (occurrence: None)
  Receive Date: 20110618
  Receipt Date: 20110606
  Transmission Date: 20111010
  Serious: Yes (Hospitalization, Other)
  Sender: FDA-Public Use
  Company Number: US-ELI_LILLY_AND_COMPANY-US201101002732

PATIENT
  Sex: Female

DRUGS (9)
  1. CLONIDINE [Concomitant]
  2. VICODIN [Concomitant]
     Dosage: UNK, PRN
  3. TRAZODONE HCL [Concomitant]
  4. SOMA [Concomitant]
  5. FORTEO [Suspect]
     Dosage: 20 UG, QD
  6. CLONAZEPAM [Concomitant]
  7. NAPROXEN [Concomitant]
  8. FORTEO [Suspect]
     Indication: OSTEOPOROSIS
     Dosage: UNK, UNKNOWN
     Dates: start: 20100601
  9. CYMBALTA [Suspect]
     Indication: FIBROMYALGIA
     Dosage: 120 MG, QD
     Dates: start: 20100601

REACTIONS (14)
  - PNEUMONIA [None]
  - SNEEZING [None]
  - VISUAL IMPAIRMENT [None]
  - LOSS OF CONSCIOUSNESS [None]
  - FALL [None]
  - LIMB INJURY [None]
  - BLISTER [None]
  - SLEEP DISORDER [None]
  - DERMATITIS CONTACT [None]
  - DRUG DOSE OMISSION [None]
  - ARTHRALGIA [None]
  - FOOT FRACTURE [None]
  - BONE DISORDER [None]
  - ANKLE FRACTURE [None]
